FAERS Safety Report 5238787-0 (Version None)
Quarter: 2007Q1

REPORT INFORMATION
  Report Type: 
  Country: None (occurrence: None)
  Receive Date: 20070215
  Receipt Date: 20070205
  Transmission Date: 20070707
  Serious: Yes (Hospitalization)
  Sender: FDA-Public Use
  Company Number: DE-PFIZER INC-2006087941

PATIENT
  Sex: Male

DRUGS (5)
  1. SU-011,248 [Suspect]
     Indication: METASTATIC RENAL CELL CARCINOMA
     Route: 048
     Dates: start: 20060313, end: 20060705
  2. PHENPROCOUMON [Concomitant]
  3. MORPHINE SULFATE [Concomitant]
  4. ESOMEPRAZOLE MAGNESIUM [Concomitant]
  5. HYDROTALCITE [Concomitant]

REACTIONS (3)
  - DERMATITIS ACNEIFORM [None]
  - DYSPNOEA [None]
  - OEDEMA PERIPHERAL [None]
